FAERS Safety Report 9485659 (Version 1)
Quarter: 2013Q3

REPORT INFORMATION
  Report Type: Spontaneous
  Country: US (occurrence: None)
  Receive Date: 20130827
  Receipt Date: 20130827
  Transmission Date: 20140515
  Serious: Yes (Death)
  Sender: FDA-Public Use
  Company Number: None

PATIENT
  Age: 68 Year
  Sex: Female

DRUGS (2)
  1. OCTREOTIDE [Suspect]
     Indication: ACROMEGALY
     Dosage: 400MCG, 3 TIMES A DAY, SUB-Q
     Dates: start: 20100225, end: 20130604
  2. OCTREOTIDE [Suspect]
     Indication: GIGANTISM
     Dosage: 400MCG, 3 TIMES A DAY, SUB-Q
     Dates: start: 20100225, end: 20130604

REACTIONS (1)
  - Death [None]
